FAERS Safety Report 9137119 (Version 1)
Quarter: 2013Q1

REPORT INFORMATION
  Report Type: Spontaneous
  Country: US (occurrence: US)
  Receive Date: 20130219
  Receipt Date: 20130219
  Transmission Date: 20140127
  Serious: No
  Sender: FDA-Public Use
  Company Number: US-BRISTOL-MYERS SQUIBB COMPANY-16803488

PATIENT
  Age: 73 Year
  Sex: Female

DRUGS (2)
  1. ORENCIA [Suspect]
     Indication: RHEUMATOID ARTHRITIS
     Dosage: TREATMENT FROM 1 YR 5 MONTHS LAST INF 10JUL12. ?INFUSION, CONTINUING.
     Route: 042
     Dates: start: 20110423
  2. PREDNISONE [Suspect]

REACTIONS (1)
  - Rash macular [Unknown]
